FAERS Safety Report 9723619 (Version 1)
Quarter: 2013Q4

REPORT INFORMATION
  Report Type: Report from Study
  Country: DE (occurrence: DE)
  Receive Date: 20131202
  Receipt Date: 20131202
  Transmission Date: 20140711
  Serious: Yes (Hospitalization)
  Sender: FDA-Public Use
  Company Number: DE-ABBVIE-13P-062-1173078-00

PATIENT
  Age: 30 Year
  Sex: Female
  Weight: 89 kg

DRUGS (2)
  1. HUMIRA [Suspect]
     Indication: CROHN^S DISEASE
     Route: 058
     Dates: start: 20080804, end: 20120315
  2. HUMIRA [Suspect]
     Route: 058
     Dates: start: 20120604

REACTIONS (2)
  - Premature labour [Recovered/Resolved]
  - Premature separation of placenta [Recovered/Resolved]
